FAERS Safety Report 8007206-3 (Version None)
Quarter: 2011Q4

REPORT INFORMATION
  Report Type: 
  Country: None (occurrence: None)
  Receive Date: 20111227
  Receipt Date: 20111213
  Transmission Date: 20120403
  Serious: Yes (Other)
  Sender: FDA-Public Use
  Company Number: JP-PFIZER INC-2011283107

PATIENT
  Age: 71 Year
  Sex: Female

DRUGS (6)
  1. OLOPATADINE HCL [Suspect]
     Indication: PRURITUS
     Dosage: 5 MG, 2X/DAY
     Route: 048
  2. HIRUDOID [Concomitant]
     Dosage: UNK
  3. DRENISON [Concomitant]
     Dosage: UNK
  4. LIPITOR [Suspect]
     Dosage: 10 MG, UID/QD
     Route: 048
  5. OLOPATADINE HCL [Suspect]
     Indication: SKIN FISSURES
  6. NERISONA [Concomitant]
     Dosage: UNK

REACTIONS (1)
  - LACERATION [None]
